FAERS Safety Report 11374347 (Version 1)
Quarter: 2015Q3

REPORT INFORMATION
  Report Type: Spontaneous
  Country: US (occurrence: None)
  Receive Date: 20150812
  Receipt Date: 20150812
  Transmission Date: 20151125
  Serious: No
  Sender: FDA-Public Use
  Company Number: None

PATIENT
  Sex: Female

DRUGS (1)
  1. WILATE [Suspect]
     Active Substance: HUMAN COAGULATION FACTOR VIII/VON WILLEBRAND FACTOR COMPLEX
     Dosage: 2000 RCDF UNITS Q 24 HRS PRN BLEEDS OR AS  IV
     Route: 042

REACTIONS (3)
  - Palpitations [None]
  - Flushing [None]
  - Incorrect drug administration rate [None]
